FAERS Safety Report 16105751 (Version 3)
Quarter: 2019Q2

REPORT INFORMATION
  Report Type: Report from Study
  Country: US (occurrence: US)
  Receive Date: 20190322
  Receipt Date: 20190426
  Transmission Date: 20190711
  Serious: Yes (Other)
  Sender: FDA-Public Use
  Company Number: US-SA-2019SA073882

PATIENT
  Age: 51 Year
  Sex: Female

DRUGS (2)
  1. LEVEMIR [Concomitant]
     Active Substance: INSULIN DETEMIR
     Dosage: UNK
  2. INSULIN GLARGINE [Suspect]
     Active Substance: INSULIN GLARGINE
     Indication: TYPE 2 DIABETES MELLITUS
     Dosage: 7 U, QD
     Dates: start: 20190313

REACTIONS (7)
  - Blood glucose increased [Not Recovered/Not Resolved]
  - Neuropathy peripheral [Unknown]
  - Blindness [Unknown]
  - Cardiac failure congestive [Unknown]
  - Intentional product use issue [Unknown]
  - Frustration tolerance decreased [Unknown]
  - Retinal detachment [Unknown]

NARRATIVE: CASE EVENT DATE: 20190313
